FAERS Safety Report 7026652-8 (Version None)
Quarter: 2010Q4

REPORT INFORMATION
  Report Type: 
  Country: None (occurrence: None)
  Receive Date: 20101004
  Receipt Date: 20100930
  Transmission Date: 20110411
  Serious: Yes (Life-Threatening)
  Sender: FDA-Public Use
  Company Number: DE-SANOFI-AVENTIS-2010SA056719

PATIENT
  Age: 76 Year
  Sex: Male

DRUGS (3)
  1. MULTAQ [Suspect]
     Indication: ATRIAL FIBRILLATION
     Route: 048
     Dates: start: 20100919, end: 20100919
  2. METOPROLOL SUCCINATE [Concomitant]
     Indication: PROPHYLAXIS
     Route: 048
  3. METOPROLOL TARTRATE [Concomitant]
     Route: 042
     Dates: start: 20100919, end: 20100919

REACTIONS (2)
  - CARDIAC ARREST [None]
  - SYNCOPE [None]
